FAERS Safety Report 9115366 (Version 1)
Quarter: 2013Q1

REPORT INFORMATION
  Report Type: Spontaneous
  Country: US (occurrence: None)
  Receive Date: 20130221
  Receipt Date: 20130221
  Transmission Date: 20140127
  Serious: No
  Sender: FDA-Public Use
  Company Number: None

PATIENT
  Age: 85 Year
  Sex: Female
  Weight: 72.58 kg

DRUGS (3)
  1. ACIPHEX (RABEPRAZOLE SODIUM) [Suspect]
     Indication: MUSCLE SPASMS
     Dosage: ONE A DAY BEFORE MEAL SWALLOW
     Route: 048
     Dates: start: 20120926, end: 20120928
  2. PROTONIX DISCONTINUED [Concomitant]
  3. PEPTO BISMOL [Concomitant]

REACTIONS (4)
  - Choking [None]
  - Vomiting [None]
  - Oesophageal spasm [None]
  - Dysphagia [None]
